FAERS Safety Report 13529341 (Version 1)
Quarter: 2017Q2

REPORT INFORMATION
  Report Type: Spontaneous
  Country: US (occurrence: US)
  Receive Date: 20170509
  Receipt Date: 20170509
  Transmission Date: 20170830
  Serious: No
  Sender: FDA-Public Use
  Company Number: US-ROCHE-GNE288697

PATIENT
  Sex: Male
  Weight: 83.99 kg

DRUGS (3)
  1. MOXAM [Concomitant]
     Active Substance: MOXALACTAM DISODIUM
     Indication: BLOOD CHOLESTEROL
  2. PROTONIX [Concomitant]
     Active Substance: PANTOPRAZOLE SODIUM
     Indication: BLOOD PRESSURE MEASUREMENT
  3. XOLAIR [Suspect]
     Active Substance: OMALIZUMAB
     Indication: ASTHMA
     Dosage: 300 UNK, 1/MONTH
     Route: 058
     Dates: start: 200707

REACTIONS (1)
  - Tinnitus [Not Recovered/Not Resolved]
